FAERS Safety Report 8255087-5 (Version None)
Quarter: 2012Q2

REPORT INFORMATION
  Report Type: 
  Country: None (occurrence: None)
  Receive Date: 20120403
  Receipt Date: 20120323
  Transmission Date: 20120825
  Serious: Yes (Other)
  Sender: FDA-Public Use
  Company Number: JP-NOVOPROD-346108

PATIENT
  Age: 12 Year
  Sex: Female
  Weight: 31 kg

DRUGS (2)
  1. LEVOTHYROXINE SODIUM [Concomitant]
     Indication: THYROIDITIS
     Dosage: 25 A?G, QD
     Route: 048
  2. NORDITROPIN [Suspect]
     Indication: TURNER'S SYNDROME
     Dosage: UNK
     Route: 058
     Dates: start: 20080117

REACTIONS (1)
  - OSTEOCHONDROSIS [None]
